FAERS Safety Report 4932996-3 (Version None)
Quarter: 2006Q1

REPORT INFORMATION
  Report Type: 
  Country: None (occurrence: None)
  Receive Date: 20060302
  Receipt Date: 20060302
  Transmission Date: 20060701
  Serious: Yes (Life-Threatening)
  Sender: FDA-Public Use
  Company Number: None

PATIENT
  Age: 24 Year
  Sex: Male
  Weight: 96.1626 kg

DRUGS (1)
  1. ACETAMINOPHEN [Suspect]
     Indication: VIRAL INFECTION
     Dosage: 2 G / DAY

REACTIONS (1)
  - HEPATIC FAILURE [None]
